FAERS Safety Report 5241422-9 (Version None)
Quarter: 2007Q1

REPORT INFORMATION
  Report Type: 
  Country: None (occurrence: None)
  Receive Date: 20070220
  Receipt Date: 20070214
  Transmission Date: 20070707
  Serious: Yes (Hospitalization)
  Sender: FDA-Public Use
  Company Number: US-SOLVAY-00207000464

PATIENT
  Age: 17974 Day
  Sex: Female
  Weight: 53.52 kg

DRUGS (1)
  1. PROMETRIUM [Suspect]
     Indication: DYSFUNCTIONAL UTERINE BLEEDING
     Dosage: DAILY DOSE: 200 MILLIGRAM(S) FOR 10 DAYS.
     Route: 048
     Dates: start: 20070201, end: 20070210

REACTIONS (4)
  - DIZZINESS [None]
  - DYSKINESIA [None]
  - DYSTONIA [None]
  - HYPOAESTHESIA [None]
